FAERS Safety Report 11894305 (Version 1)
Quarter: 2016Q1

REPORT INFORMATION
  Report Type: Spontaneous
  Country: US (occurrence: None)
  Receive Date: 20160106
  Receipt Date: 20160106
  Transmission Date: 20160526
  Serious: Yes (Life-Threatening, Hospitalization)
  Sender: FDA-Public Use
  Company Number: None

PATIENT
  Age: 53 Year
  Sex: Male
  Weight: 73.48 kg

DRUGS (12)
  1. PROVIGIL [Concomitant]
     Active Substance: MODAFINIL
  2. ALDACTONE [Concomitant]
     Active Substance: SPIRONOLACTONE
  3. PROCARDIA SL [Concomitant]
  4. FLUTICASONE [Concomitant]
     Active Substance: FLUTICASONE\FLUTICASONE PROPIONATE
  5. MINOXIDIL. [Concomitant]
     Active Substance: MINOXIDIL
  6. TOPROL XL [Concomitant]
     Active Substance: METOPROLOL SUCCINATE
  7. RISPERIDONE. [Suspect]
     Active Substance: RISPERIDONE
     Indication: PSYCHOTIC DISORDER
     Route: 048
     Dates: start: 20150926, end: 20151027
  8. DUONEB [Concomitant]
     Active Substance: ALBUTEROL SULFATE\IPRATROPIUM BROMIDE
  9. LIPITOR [Concomitant]
     Active Substance: ATORVASTATIN CALCIUM
  10. FLUTICASONE/SALMETEROL INHALER [Concomitant]
     Active Substance: ALBUTEROL SULFATE\FLUTICASONE PROPIONATE
  11. RISPERIDONE. [Concomitant]
     Active Substance: RISPERIDONE
  12. COGENTIN [Concomitant]
     Active Substance: BENZTROPINE MESYLATE

REACTIONS (7)
  - Dyspnoea [None]
  - Sedation [None]
  - Chronic obstructive pulmonary disease [None]
  - Respiratory arrest [None]
  - Narcolepsy [None]
  - Atrial fibrillation [None]
  - Pericardial effusion [None]

NARRATIVE: CASE EVENT DATE: 20151013
